FAERS Safety Report 9888003 (Version 1)
Quarter: 2014Q1

REPORT INFORMATION
  Report Type: Spontaneous
  Country: NO (occurrence: None)
  Receive Date: 20140207
  Receipt Date: 20140207
  Transmission Date: 20141002
  Serious: Yes (Life-Threatening)
  Sender: FDA-Public Use
  Company Number: FK201400326

PATIENT
  Age: 46 Year
  Sex: Female

DRUGS (2)
  1. ROPIVACAINE [Suspect]
     Indication: POSTOPERATIVE ANALGESIA
     Dosage: 75 MG, 1 IN 1 TOTAL, PARENTERAL
     Dates: start: 20131205, end: 20131205
  2. FENTANYL (FENTANYL) (FENTANYL) [Concomitant]

REACTIONS (1)
  - Grand mal convulsion [None]
